FAERS Safety Report 25954834 (Version 1)
Quarter: 2025Q4

REPORT INFORMATION
  Report Type: Spontaneous
  Country: CA (occurrence: None)
  Receive Date: 20251024
  Receipt Date: 20251024
  Transmission Date: 20260117
  Serious: Yes (Other)
  Sender: ORION
  Company Number: CA-PFIZER INC-202500205132

PATIENT
  Age: 37 Year
  Sex: Female

DRUGS (2)
  1. METHOTREXATE [Suspect]
     Active Substance: METHOTREXATE
     Indication: Product used for unknown indication
  2. CERTOLIZUMAB [Concomitant]
     Active Substance: CERTOLIZUMAB

REACTIONS (5)
  - Idiopathic interstitial pneumonia [Unknown]
  - Rheumatoid arthritis [Unknown]
  - Systemic scleroderma [Unknown]
  - Condition aggravated [Unknown]
  - Drug ineffective [Unknown]
